FAERS Safety Report 9163615 (Version 1)
Quarter: 2013Q1

REPORT INFORMATION
  Report Type: Spontaneous
  Country: US (occurrence: US)
  Receive Date: 20130314
  Receipt Date: 20130314
  Transmission Date: 20140127
  Serious: No
  Sender: FDA-Public Use
  Company Number: US-ASTRAZENECA-2013SE12621

PATIENT
  Age: 66 Year
  Sex: Female
  Weight: 56.7 kg

DRUGS (6)
  1. SYMBICORT [Suspect]
     Indication: BRONCHITIS
     Dosage: 160/4.5 MCG, TWO PUFFS TWO TIMES A DAY
     Route: 055
     Dates: start: 20130208
  2. CRESTOR [Suspect]
     Route: 048
  3. ATENOLOL [Suspect]
  4. LEVOTHYROXINE [Concomitant]
  5. LOSARTAN [Concomitant]
  6. FUEROSEMIDE [Concomitant]

REACTIONS (7)
  - Stomatitis [Unknown]
  - Dysgeusia [Unknown]
  - Dry mouth [Unknown]
  - Dysphonia [Unknown]
  - Headache [Unknown]
  - Palpitations [Unknown]
  - Blood pressure increased [Unknown]
